FAERS Safety Report 6680843-4 (Version None)
Quarter: 2010Q2

REPORT INFORMATION
  Report Type: 
  Country: None (occurrence: None)
  Receive Date: 20100414
  Receipt Date: 20100405
  Transmission Date: 20101027
  Serious: Yes (Other)
  Sender: FDA-Public Use
  Company Number: JP-PFIZER INC-2010041068

PATIENT

DRUGS (3)
  1. GABAPEN [Suspect]
     Indication: TRIGEMINAL NEURALGIA
     Dosage: UNK
     Route: 048
  2. WARFARIN POTASSIUM [Concomitant]
     Indication: CARDIAC DISORDER
  3. TEGRETOL [Concomitant]
     Indication: TRIGEMINAL NEURALGIA
     Dosage: UNK

REACTIONS (1)
  - ANTICOAGULATION DRUG LEVEL BELOW THERAPEUTIC [None]
